FAERS Safety Report 5080008-6 (Version None)
Quarter: 2006Q3

REPORT INFORMATION
  Report Type: 
  Country: None (occurrence: None)
  Receive Date: 20060720
  Receipt Date: 20051115
  Transmission Date: 20061208
  Serious: Yes (Other)
  Sender: FDA-Public Use
  Company Number: 2005159472

PATIENT
  Sex: Female
  Weight: 83.9154 kg

DRUGS (1)
  1. CELEBREX [Suspect]
     Indication: ARTHRALGIA
     Dosage: ORAL
     Route: 048

REACTIONS (7)
  - FATIGUE [None]
  - HYPERSENSITIVITY [None]
  - NERVOUSNESS [None]
  - OCULAR HYPERAEMIA [None]
  - SKIN BURNING SENSATION [None]
  - SKIN DISORDER [None]
  - SWELLING FACE [None]
